FAERS Safety Report 21704204 (Version 1)
Quarter: 2022Q4

REPORT INFORMATION
  Report Type: Report from Study
  Country: US (occurrence: US)
  Receive Date: 20221209
  Receipt Date: 20221209
  Transmission Date: 20230113
  Serious: Yes (Other)
  Sender: FDA-Public Use
  Company Number: US-ABBVIE-4229629

PATIENT
  Age: 51 Year
  Sex: Female

DRUGS (1)
  1. HUMIRA [Suspect]
     Active Substance: ADALIMUMAB
     Indication: Psoriasis
     Dosage: SKIPPED A FEW INJECTIONS  19 OCT 2022 LAST INJECTION
     Route: 058
     Dates: end: 20221019

REACTIONS (4)
  - Periarthritis [Unknown]
  - Tuberculosis [Unknown]
  - COVID-19 [Recovered/Resolved]
  - Psoriasis [Unknown]

NARRATIVE: CASE EVENT DATE: 20220501
